FAERS Safety Report 10635883 (Version 4)
Quarter: 2015Q1

REPORT INFORMATION
  Report Type: Report from Study
  Country: BR (occurrence: BR)
  Receive Date: 20141205
  Receipt Date: 20150101
  Transmission Date: 20150720
  Serious: Yes (Other)
  Sender: FDA-Public Use
  Company Number: PHHY2014BR074148

PATIENT
  Age: 61 Year
  Sex: Female
  Weight: 74.3 kg

DRUGS (9)
  1. QUETIAPINE [Concomitant]
     Active Substance: QUETIAPINE
     Indication: BIPOLAR DISORDER
     Dosage: 2 DF, QD
     Route: 048
  2. RIVOTRIL [Suspect]
     Active Substance: CLONAZEPAM
     Indication: SLEEP DISORDER
     Dosage: 1 DF, QD
     Route: 048
     Dates: start: 2010
  3. SODIUM VALPROATE [Concomitant]
     Active Substance: VALPROATE SODIUM
     Indication: MENTAL DISORDER
     Dosage: 1 DF, DAILY
     Route: 065
     Dates: start: 2010
  4. DEPAKOTE [Suspect]
     Active Substance: DIVALPROEX SODIUM
     Indication: BIPOLAR DISORDER
     Dosage: 1 DF, BID (1 IN THE MORNING AND 1 AT NIGHT)
     Route: 048
     Dates: start: 2010
  5. PHENERGAN [Concomitant]
     Active Substance: PROMETHAZINE HYDROCHLORIDE
     Indication: PRODUCT USED FOR UNKNOWN INDICATION
     Dosage: 1 DF, DAILY
     Route: 065
     Dates: start: 2010
  6. GLIFAGE [Suspect]
     Active Substance: METFORMIN HYDROCHLORIDE
     Indication: GLUCOSE TOLERANCE IMPAIRED
     Dosage: 4 DF, QD
     Route: 048
  7. GALVUS [Suspect]
     Active Substance: VILDAGLIPTIN
     Indication: GLUCOSE TOLERANCE IMPAIRED
     Dosage: 1 DF, DAILY (IN THE MORNING)
     Route: 048
     Dates: start: 20140603
  8. RISPERIDONE. [Suspect]
     Active Substance: RISPERIDONE
     Indication: BIPOLAR DISORDER
     Dosage: 1 DF IN THE MORNING
     Route: 048
     Dates: start: 2010
  9. ASPIRIN. [Concomitant]
     Active Substance: ASPIRIN
     Indication: ANTICOAGULANT THERAPY
     Dosage: 1 DF, QD
     Route: 048

REACTIONS (23)
  - Fatigue [Recovered/Resolved]
  - Nervousness [Not Recovered/Not Resolved]
  - Urine output decreased [Unknown]
  - Fluid retention [Recovered/Resolved]
  - Acne [Recovered/Resolved]
  - Haematoma [Recovered/Resolved]
  - Eye swelling [Recovered/Resolved]
  - Mood altered [Not Recovered/Not Resolved]
  - Thirst [Recovering/Resolving]
  - Tympanic membrane perforation [Recovered/Resolved]
  - Ear haemorrhage [Recovered/Resolved]
  - Polyuria [Recovering/Resolving]
  - Swelling face [Recovered/Resolved]
  - Influenza [Recovered/Resolved]
  - Skin discolouration [Recovered/Resolved]
  - Blood glucose increased [Recovered/Resolved]
  - Peripheral swelling [Recovered/Resolved]
  - Product use issue [Unknown]
  - Seborrhoea [Recovered/Resolved]
  - Concomitant disease aggravated [Not Recovered/Not Resolved]
  - Polydipsia [Unknown]
  - Haemorrhage [Recovered/Resolved]
  - Weight fluctuation [Unknown]

NARRATIVE: CASE EVENT DATE: 20140611
